FAERS Safety Report 5224813-1 (Version None)
Quarter: 2007Q1

REPORT INFORMATION
  Report Type: 
  Country: None (occurrence: None)
  Receive Date: 20070131
  Receipt Date: 20070129
  Transmission Date: 20070707
  Serious: Yes (Hospitalization)
  Sender: FDA-Public Use
  Company Number: FRWYE396729JAN07

PATIENT
  Age: 11 Year
  Sex: Female
  Weight: 50 kg

DRUGS (2)
  1. ADVIL [Suspect]
     Dosage: UNKNOWN
     Route: 048
     Dates: end: 20061221
  2. DOLIPRANE [Suspect]
     Dosage: UNKNOWN
     Route: 048
     Dates: end: 20061221

REACTIONS (4)
  - DIARRHOEA [None]
  - MYCOPLASMA INFECTION [None]
  - STEVENS-JOHNSON SYNDROME [None]
  - VOMITING [None]
